FAERS Safety Report 10342320 (Version 1)
Quarter: 2014Q3

REPORT INFORMATION
  Report Type: Spontaneous
  Country: US (occurrence: US)
  Receive Date: 20140725
  Receipt Date: 20140725
  Transmission Date: 20150326
  Serious: No
  Sender: FDA-Public Use
  Company Number: US-GLAXOSMITHKLINE-A1025712A

PATIENT
  Age: 41 Year
  Sex: Female

DRUGS (2)
  1. LAMICTAL XR [Suspect]
     Active Substance: LAMOTRIGINE
     Indication: CONVULSION
     Dosage: 200MG TWICE PER DAY
     Route: 048
     Dates: start: 201202
  2. NO CONCURRENT MEDICATION [Concomitant]
     Active Substance: UNSPECIFIED INGREDIENT

REACTIONS (7)
  - Throat irritation [Unknown]
  - Nausea [Unknown]
  - Dyspepsia [Unknown]
  - Headache [Recovering/Resolving]
  - Myalgia [Unknown]
  - Hypoaesthesia [Unknown]
  - Palpitations [Unknown]

NARRATIVE: CASE EVENT DATE: 201304
